FAERS Safety Report 5676554 (Version 14)
Quarter: 2016Q1

REPORT INFORMATION
  Report Type: Spontaneous
  Country: US (occurrence: US)
  Receive Date: 20041118
  Receipt Date: 20160314
  Transmission Date: 20160526
  Serious: Yes (Hospitalization, Disabling, Other)
  Sender: FDA-Public Use
  Company Number: US-ROCHE-385948

PATIENT
  Age: 16 Year
  Sex: Male
  Weight: 68.5 kg

DRUGS (1)
  1. ACCUTANE [Suspect]
     Active Substance: ISOTRETINOIN
     Indication: ACNE
     Route: 048
     Dates: start: 19890516, end: 19891006

REACTIONS (25)
  - Gastroenteritis [Recovered/Resolved]
  - Haematochezia [Unknown]
  - Internal injury [Unknown]
  - Anal stenosis [Unknown]
  - Rectal haemorrhage [Unknown]
  - Vomiting [Unknown]
  - Colitis [Unknown]
  - Colitis ulcerative [Unknown]
  - Nausea [Unknown]
  - Inflammatory bowel disease [Unknown]
  - Proctalgia [Unknown]
  - Anaemia [Recovered/Resolved]
  - Diarrhoea [Unknown]
  - Pouchitis [Recovered/Resolved]
  - Intestinal haemorrhage [Unknown]
  - Anal fissure [Unknown]
  - Gastrointestinal disorder [Unknown]
  - Ureterolithiasis [Unknown]
  - Anal fistula [Unknown]
  - Musculoskeletal pain [Unknown]
  - Abdominal pain [Unknown]
  - Vomiting [Unknown]
  - Dehydration [Unknown]
  - Irritable bowel syndrome [Unknown]
  - Megacolon [Recovered/Resolved]

NARRATIVE: CASE EVENT DATE: 198910
